FAERS Safety Report 12495014 (Version 3)
Quarter: 2016Q4

REPORT INFORMATION
  Report Type: Report from Study
  Country: DE (occurrence: DE)
  Receive Date: 20160624
  Receipt Date: 20161116
  Transmission Date: 20170207
  Serious: Yes (Hospitalization, Other)
  Sender: FDA-Public Use
  Company Number: DE-BRISTOL-MYERS SQUIBB COMPANY-BMS-2016-036964

PATIENT
  Age: 69 Year
  Sex: Male

DRUGS (1)
  1. APIXABAN [Suspect]
     Active Substance: APIXABAN
     Indication: CEREBROVASCULAR ACCIDENT PROPHYLAXIS
     Dosage: UNK, QD
     Route: 065
     Dates: start: 201506

REACTIONS (9)
  - External fixation of fracture [Unknown]
  - Forearm fracture [Unknown]
  - Off label use [Unknown]
  - Carpal tunnel decompression [Unknown]
  - Carpal tunnel syndrome [Unknown]
  - Osteosynthesis [Unknown]
  - Fall [Unknown]
  - Injury [Not Recovered/Not Resolved]
  - Soft tissue injury [Unknown]

NARRATIVE: CASE EVENT DATE: 20160508
